FAERS Safety Report 10349624 (Version 1)
Quarter: 2014Q3

REPORT INFORMATION
  Report Type: Report from Study
  Country: NL (occurrence: None)
  Receive Date: 20140728
  Receipt Date: 20140728
  Transmission Date: 20150326
  Serious: Yes (Disabling)
  Sender: FDA-Public Use
  Company Number: 2002-00081DE

PATIENT
  Age: 60 Year
  Sex: Male

DRUGS (1)
  1. ZOMACTON (ZOMACTON) 1.2 IU (NOT SPECIFIED) [Suspect]
     Active Substance: SOMATROPIN
     Indication: BLOOD GROWTH HORMONE ABNORMAL
     Route: 048
     Dates: start: 19991203, end: 200206

REACTIONS (2)
  - Pituitary tumour recurrent [None]
  - Blindness [None]

NARRATIVE: CASE EVENT DATE: 20020707
